FAERS Safety Report 6707063-9 (Version None)
Quarter: 2010Q2

REPORT INFORMATION
  Report Type: 
  Country: None (occurrence: None)
  Receive Date: 20100503
  Receipt Date: 20100420
  Transmission Date: 20101027
  Serious: Yes (Hospitalization)
  Sender: FDA-Public Use
  Company Number: TW-WATSON-2010-05711

PATIENT
  Age: 45 Year
  Sex: Female

DRUGS (1)
  1. LAMOTRIGINE [Suspect]
     Indication: DEPRESSION
     Dosage: 25 MG, DAILY INCREASE TO 200MG/D 15 DAYS LATER

REACTIONS (1)
  - SJOGREN'S SYNDROME [None]
